FAERS Safety Report 6089064-X (Version None)
Quarter: 2009Q1

REPORT INFORMATION
  Report Type: 
  Country: None (occurrence: None)
  Receive Date: 20090224
  Receipt Date: 20090218
  Transmission Date: 20090719
  Serious: Yes (Hospitalization)
  Sender: FDA-Public Use
  Company Number: B0560182A

PATIENT
  Age: 98 Year
  Sex: Male

DRUGS (8)
  1. CLAMOXYL IV [Suspect]
     Indication: ERYSIPELAS
     Dosage: 1G THREE TIMES PER DAY
     Route: 042
     Dates: start: 20071223, end: 20080111
  2. AUGMENTIN '125' [Suspect]
     Indication: ERYSIPELAS
     Dosage: 1G THREE TIMES PER DAY
     Route: 042
     Dates: start: 20071225, end: 20071230
  3. COLCHICINE [Suspect]
     Dosage: 1UNIT PER DAY
     Route: 048
     Dates: start: 20071226, end: 20080102
  4. ZYLORIC [Concomitant]
     Dosage: 100MG PER DAY
     Route: 048
  5. LASILIX FAIBLE [Concomitant]
     Dosage: 20MG PER DAY
     Route: 048
  6. LERCAN [Concomitant]
     Dosage: 10MG PER DAY
     Route: 048
  7. PERMIXON [Concomitant]
     Indication: MICTURITION DISORDER
     Dosage: 320MG PER DAY
     Route: 048
  8. ELISOR [Concomitant]
     Dosage: 20MG PER DAY
     Route: 048

REACTIONS (4)
  - ABDOMINAL DISTENSION [None]
  - COLONIC PSEUDO-OBSTRUCTION [None]
  - FAECAL VOMITING [None]
  - FLATULENCE [None]
